FAERS Safety Report 9977430 (Version 2)
Quarter: 2014Q1

REPORT INFORMATION
  Report Type: Report from Study
  Country: US (occurrence: US)
  Receive Date: 20140306
  Receipt Date: 20140306
  Transmission Date: 20141002
  Serious: Yes (Hospitalization, Other)
  Sender: FDA-Public Use
  Company Number: US-ABBVIE-13P-163-1125659-00

PATIENT
  Age: 46 Year
  Sex: Female

DRUGS (11)
  1. HUMIRA [Suspect]
     Indication: CROHN^S DISEASE
     Dosage: ON DAY 1
     Route: 058
     Dates: start: 20130726, end: 20130726
  2. HUMIRA [Suspect]
     Indication: CROHN^S DISEASE
     Route: 058
     Dates: start: 201308, end: 201308
  3. HUMIRA [Suspect]
     Route: 058
     Dates: start: 201308
  4. NEXIUM [Concomitant]
     Indication: PRODUCT USED FOR UNKNOWN INDICATION
  5. ESTRADIOL [Concomitant]
     Indication: PRODUCT USED FOR UNKNOWN INDICATION
  6. IRON [Concomitant]
     Indication: PRODUCT USED FOR UNKNOWN INDICATION
     Dosage: CHEWS
  7. CALCIUM [Concomitant]
     Indication: PRODUCT USED FOR UNKNOWN INDICATION
  8. KLONOPIN [Concomitant]
     Indication: ANXIETY
     Dosage: 1 MG IN AM AND 2 AT NIGHT
  9. KLONOPIN [Concomitant]
     Indication: ABDOMINAL DISCOMFORT
  10. PHENERGAN [Concomitant]
     Indication: NAUSEA
  11. ZOFRAN [Concomitant]
     Indication: NAUSEA

REACTIONS (26)
  - Clostridium difficile infection [Unknown]
  - Vomiting [Unknown]
  - Dehydration [Unknown]
  - Vomiting [Unknown]
  - Dehydration [Unknown]
  - Clostridium difficile infection [Unknown]
  - Pain [Not Recovered/Not Resolved]
  - Influenza like illness [Not Recovered/Not Resolved]
  - Headache [Not Recovered/Not Resolved]
  - Nausea [Not Recovered/Not Resolved]
  - Arthralgia [Recovered/Resolved]
  - Injection site swelling [Recovered/Resolved]
  - Injection site bruising [Recovered/Resolved]
  - Injection site erythema [Recovering/Resolving]
  - Anxiety [Unknown]
  - Weight increased [Unknown]
  - Injection site pain [Not Recovered/Not Resolved]
  - Pyoderma [Not Recovered/Not Resolved]
  - Pruritus [Not Recovered/Not Resolved]
  - Psoriasis [Unknown]
  - Weight increased [Unknown]
  - Insomnia [Not Recovered/Not Resolved]
  - Vomiting [Not Recovered/Not Resolved]
  - Skin exfoliation [Unknown]
  - Skin exfoliation [Unknown]
  - Crohn^s disease [Unknown]
